FAERS Safety Report 25902133 (Version 2)
Quarter: 2025Q4

REPORT INFORMATION
  Report Type: Report from Study
  Country: RS (occurrence: RS)
  Receive Date: 20251009
  Receipt Date: 20251015
  Transmission Date: 20260117
  Serious: No
  Sender: PFIZER
  Company Number: RS-PFIZER INC-PV202500119678

PATIENT
  Age: 54 Year
  Sex: Male

DRUGS (1)
  1. ELRANATAMAB [Suspect]
     Active Substance: ELRANATAMAB
     Dosage: 5TH LINE, 2 CYCLES

REACTIONS (1)
  - No adverse event [Unknown]
